FAERS Safety Report 8831275 (Version 2)
Quarter: 2012Q4

REPORT INFORMATION
  Report Type: 
  Country: US (occurrence: US)
  Receive Date: 20121008
  Receipt Date: 20121120
  Transmission Date: 20130627
  Serious: No
  Sender: FDA-Public Use
  Company Number: US-009507513-1208USA010450

PATIENT
  Sex: Female
  Weight: 54.42 kg

DRUGS (14)
  1. CLARITIN [Suspect]
     Indication: HYPERSENSITIVITY
     Dosage: 10 mg, qd
     Route: 048
     Dates: start: 20120805, end: 20120810
  2. CLARITIN [Suspect]
     Indication: MEDICAL OBSERVATION
  3. CLARITIN [Suspect]
     Indication: SINUS DISORDER
  4. DEXILANT [Concomitant]
     Indication: GASTROOESOPHAGEAL REFLUX DISEASE
     Dosage: UNK, Unknown
  5. PRAVASTATIN SODIUM [Concomitant]
     Indication: BLOOD CHOLESTEROL
     Dosage: UNK, Unknown
  6. RHINOCORT (BUDESONIDE) [Concomitant]
     Indication: PRODUCT USED FOR UNKNOWN INDICATION
     Dosage: UNK, Unknown
  7. SINGULAIR [Concomitant]
     Indication: HYPERSENSITIVITY
     Dosage: UNK, Unknown
  8. BENADRYL [Concomitant]
     Indication: HYPERSENSITIVITY
     Dosage: UNK, Unknown
  9. PROAIR (ALBUTEROL SULFATE) [Concomitant]
     Indication: ASTHMA
     Dosage: UNK, Unknown
  10. RISPERDAL [Concomitant]
     Indication: DYSTHYMIC DISORDER
     Dosage: 1 mg, Unknown
  11. RISPERDAL [Concomitant]
     Indication: MAJOR DEPRESSION
  12. MIRTAZAPINE [Concomitant]
     Indication: MAJOR DEPRESSION
     Dosage: UNK, Unknown
  13. CYMBALTA [Concomitant]
     Indication: ARTHRITIS
     Dosage: 30 mg, Unknown
  14. OCEAN [Concomitant]
     Indication: HYPERSENSITIVITY

REACTIONS (1)
  - Drug ineffective [Unknown]
